FAERS Safety Report 13779191 (Version 1)
Quarter: 2017Q3

REPORT INFORMATION
  Report Type: Spontaneous
  Country: US (occurrence: US)
  Receive Date: 20170721
  Receipt Date: 20170721
  Transmission Date: 20171127
  Serious: Yes (Hospitalization)
  Sender: FDA-Public Use
  Company Number: PHHY2017US103901

PATIENT
  Age: 29 Year
  Sex: Male

DRUGS (1)
  1. LEUPROLIDE [Suspect]
     Active Substance: LEUPROLIDE
     Indication: PROPHYLAXIS
     Route: 065

REACTIONS (3)
  - Painful erection [Unknown]
  - Priapism [Unknown]
  - Disease recurrence [Unknown]
